FAERS Safety Report 19010272 (Version 1)
Quarter: 2021Q1

REPORT INFORMATION
  Report Type: Report from Study
  Country: FI (occurrence: FI)
  Receive Date: 20210315
  Receipt Date: 20210315
  Transmission Date: 20210420
  Serious: Yes (Hospitalization)
  Sender: FDA-Public Use
  Company Number: FI-MYLANLABS-2021M1014888

PATIENT
  Age: 42 Year
  Sex: Male

DRUGS (1)
  1. LEPONEX [Suspect]
     Active Substance: CLOZAPINE
     Indication: SCHIZOAFFECTIVE DISORDER
     Dosage: UNK
     Dates: start: 202102

REACTIONS (3)
  - C-reactive protein increased [Unknown]
  - Off label use [Unknown]
  - Infection [Unknown]

NARRATIVE: CASE EVENT DATE: 202102
